FAERS Safety Report 8546738 (Version 2)
Quarter: 2013Q1

REPORT INFORMATION
  Report Type: Spontaneous
  Country: US (occurrence: US)
  Receive Date: 20120504
  Receipt Date: 20130204
  Transmission Date: 20140127
  Serious: No
  Sender: FDA-Public Use
  Company Number: US-GLAXOSMITHKLINE-A0970529A

PATIENT
  Age: 76 Year
  Sex: Female

DRUGS (4)
  1. HORIZANT [Suspect]
     Indication: NEURALGIA
     Dosage: 600MG AT NIGHT
     Route: 048
     Dates: start: 201202, end: 20121010
  2. VITAMINS [Concomitant]
  3. DILAUDID [Concomitant]
  4. WARFARIN [Concomitant]

REACTIONS (6)
  - Sleep disorder [Unknown]
  - Hypersomnia [Unknown]
  - Balance disorder [Recovered/Resolved]
  - Dizziness [Recovering/Resolving]
  - Nausea [Not Recovered/Not Resolved]
  - Decreased appetite [Unknown]
